FAERS Safety Report 4559750-9 (Version None)
Quarter: 2005Q1

REPORT INFORMATION
  Report Type: 
  Country: None (occurrence: None)
  Receive Date: 20050114
  Receipt Date: 20040505
  Transmission Date: 20050727
  Serious: Yes (Hospitalization)
  Sender: FDA-Public Use
  Company Number: BDI-006127

PATIENT
  Age: 37 Year
  Sex: Male
  Weight: 64 kg

DRUGS (6)
  1. PROHANCE [Suspect]
     Indication: BACK PAIN
     Dosage: 13 ML ONCE IV
     Route: 042
     Dates: start: 20040504, end: 20040504
  2. PROHANCE [Suspect]
     Indication: NUCLEAR MAGNETIC RESONANCE IMAGING
     Dosage: 13 ML ONCE IV
     Route: 042
     Dates: start: 20040504, end: 20040504
  3. CIPRO [Concomitant]
  4. NEXIUM [Concomitant]
  5. ULTRAM [Concomitant]
  6. BEXTRA [Concomitant]

REACTIONS (6)
  - DYSPNOEA [None]
  - PRURITUS [None]
  - RASH [None]
  - SWELLING FACE [None]
  - TREMOR [None]
  - URTICARIA [None]
